FAERS Safety Report 8281888-3 (Version None)
Quarter: 2012Q2

REPORT INFORMATION
  Report Type: 
  Country: None (occurrence: None)
  Receive Date: 20120413
  Receipt Date: 20120331
  Transmission Date: 20120825
  Serious: Yes (Other)
  Sender: FDA-Public Use
  Company Number: US-JNJFOC-20120402527

PATIENT
  Age: 74 Year
  Sex: Male
  Weight: 99.79 kg

DRUGS (5)
  1. INVEGA SUSTENNA [Suspect]
     Route: 030
     Dates: start: 20120201
  2. INVEGA SUSTENNA [Suspect]
     Indication: BIPOLAR DISORDER
     Route: 030
     Dates: start: 20120322
  3. INVEGA SUSTENNA [Suspect]
     Route: 030
     Dates: start: 20120201
  4. INVEGA SUSTENNA [Suspect]
     Indication: PSYCHOTIC DISORDER
     Route: 030
     Dates: start: 20120322
  5. DEPAKOTE [Concomitant]
     Route: 065

REACTIONS (4)
  - NERVOUSNESS [None]
  - ASTHENIA [None]
  - CONVULSION [None]
  - FEELING HOT [None]
